FAERS Safety Report 5661501-1 (Version None)
Quarter: 2008Q1

REPORT INFORMATION
  Report Type: 
  Country: None (occurrence: None)
  Receive Date: 20080312
  Receipt Date: 20080304
  Transmission Date: 20080703
  Serious: Yes (Hospitalization)
  Sender: FDA-Public Use
  Company Number: DE-ROCHE-551503

PATIENT
  Age: 58 Year
  Sex: Male

DRUGS (4)
  1. DIAZEPAM [Suspect]
     Indication: RESTLESSNESS
     Dosage: DOSE REPORTED AS MAXIMUM 250 MG.
     Route: 065
  2. APONAL [Suspect]
     Indication: RESTLESSNESS
     Dosage: DOSE REPORTED AS MAXIMUM 1.9 GRAM
     Route: 065
  3. NEUROCIL [Suspect]
     Indication: RESTLESSNESS
     Route: 065
  4. PEG-INTRON [Concomitant]
     Dosage: PATIENT TAKES ALTERNATING 50 AND 25 MCG EVERY SECOND WEEK

REACTIONS (4)
  - DRUG TOXICITY [None]
  - NERVOUS SYSTEM DISORDER [None]
  - RADIAL NERVE PALSY [None]
  - RHABDOMYOLYSIS [None]
